FAERS Safety Report 23619075 (Version 1)
Quarter: 2024Q1

REPORT INFORMATION
  Report Type: Spontaneous
  Country: RO (occurrence: RO)
  Receive Date: 20240311
  Receipt Date: 20240311
  Transmission Date: 20240409
  Serious: Yes (Other)
  Sender: FDA-Public Use
  Company Number: RO-009507513-2403ROU001526

PATIENT
  Age: 49 Year

DRUGS (2)
  1. PEMBROLIZUMAB [Suspect]
     Active Substance: PEMBROLIZUMAB
     Indication: Malignant melanoma
     Dosage: 200 MILLIGRAM, Q21 (Q3W)
     Route: 042
     Dates: start: 20220630
  2. PEMBROLIZUMAB [Suspect]
     Active Substance: PEMBROLIZUMAB
     Dosage: 200 MILLIGRAM, Q3W
     Route: 042
     Dates: start: 20220811, end: 20230621

REACTIONS (5)
  - Hepatic cytolysis [Unknown]
  - Hypothyroidism [Recovered/Resolved]
  - Pruritus [Unknown]
  - Asthenia [Unknown]
  - Toxicity to various agents [Unknown]
